FAERS Safety Report 22653531 (Version 2)
Quarter: 2023Q4

REPORT INFORMATION
  Report Type: Report from Study
  Country: US (occurrence: US)
  Receive Date: 20230629
  Receipt Date: 20231208
  Transmission Date: 20240109
  Serious: Yes (Other)
  Sender: FDA-Public Use
  Company Number: US-BAUSCH-BL-2023-009745

PATIENT
  Age: 66 Year
  Sex: Male

DRUGS (2)
  1. SILIQ [Suspect]
     Active Substance: BRODALUMAB
     Indication: Product used for unknown indication
     Dosage: 210MG/ 1.5ML
     Route: 065
     Dates: end: 20230619
  2. SILIQ [Suspect]
     Active Substance: BRODALUMAB
     Dosage: 210MG/ 1.5ML
     Route: 065
     Dates: start: 2023, end: 202311

REACTIONS (4)
  - Haemorrhage [Not Recovered/Not Resolved]
  - Gait inability [Not Recovered/Not Resolved]
  - Product use issue [Unknown]
  - Product availability issue [Unknown]

NARRATIVE: CASE EVENT DATE: 20230101
